FAERS Safety Report 23541162 (Version 2)
Quarter: 2024Q2

REPORT INFORMATION
  Report Type: Spontaneous
  Country: US (occurrence: US)
  Receive Date: 20240219
  Receipt Date: 20240517
  Transmission Date: 20240716
  Serious: No
  Sender: FDA-Public Use
  Company Number: US-Stemline Therapeutics, Inc.-2024ST000248

PATIENT
  Age: 67 Year
  Sex: Female

DRUGS (1)
  1. ORSERDU [Suspect]
     Active Substance: ELACESTRANT
     Indication: Product used for unknown indication
     Dosage: 345 MG, ONCE A DAY
     Route: 048
     Dates: start: 20231115

REACTIONS (8)
  - Influenza like illness [Unknown]
  - Pain [Unknown]
  - Flatulence [Unknown]
  - Depressed mood [Unknown]
  - Adverse drug reaction [Recovering/Resolving]
  - Dyspnoea [Unknown]
  - Pruritus [Unknown]
  - Drug ineffective [Unknown]
